FAERS Safety Report 25834738 (Version 1)
Quarter: 2025Q3

REPORT INFORMATION
  Report Type: Spontaneous
  Country: US (occurrence: US)
  Receive Date: 20250923
  Receipt Date: 20250923
  Transmission Date: 20251021
  Serious: Yes (Hospitalization, Other)
  Sender: LUPIN
  Company Number: US-LUPIN HEALTHCARE (UK) LIMITED-2025-08280

PATIENT
  Age: 9 Year
  Sex: Male

DRUGS (30)
  1. METHYLPHENIDATE [Suspect]
     Active Substance: METHYLPHENIDATE
     Indication: Attention deficit hyperactivity disorder
     Route: 065
  2. SERTRALINE [Suspect]
     Active Substance: SERTRALINE HYDROCHLORIDE
     Indication: Obsessive-compulsive disorder
     Dosage: 37.5 MG, QD
     Route: 065
     Dates: start: 202205, end: 202206
  3. SERTRALINE [Suspect]
     Active Substance: SERTRALINE HYDROCHLORIDE
     Indication: Paediatric acute-onset neuropsychiatric syndrome
  4. LAMOTRIGINE [Suspect]
     Active Substance: LAMOTRIGINE
     Indication: Paediatric acute-onset neuropsychiatric syndrome
     Dosage: 150 MG, QD
     Route: 065
     Dates: start: 202208
  5. LAMOTRIGINE [Suspect]
     Active Substance: LAMOTRIGINE
     Indication: Mood swings
     Dosage: 25 MG, BID
     Route: 065
     Dates: end: 202311
  6. LURASIDONE [Suspect]
     Active Substance: LURASIDONE
     Indication: Suicidal ideation
     Route: 065
  7. LURASIDONE [Suspect]
     Active Substance: LURASIDONE
     Indication: Paediatric acute-onset neuropsychiatric syndrome
  8. CLOMIPRAMINE [Suspect]
     Active Substance: CLOMIPRAMINE
     Indication: Suicidal ideation
     Dosage: 100 MG, QD, CLOMIPRAMINE WAS ADDED TO HIS REGIMEN AND TITRATED TO 100 MG DAILY
     Route: 065
     Dates: start: 202206, end: 202211
  9. CLOMIPRAMINE [Suspect]
     Active Substance: CLOMIPRAMINE
     Indication: Paediatric acute-onset neuropsychiatric syndrome
  10. AZITHROMYCIN [Suspect]
     Active Substance: AZITHROMYCIN
     Indication: Paediatric acute-onset neuropsychiatric syndrome
     Dosage: 250 MG, TIW
     Route: 065
     Dates: start: 202208
  11. AZITHROMYCIN [Suspect]
     Active Substance: AZITHROMYCIN
     Dosage: 250 MG, TID
     Route: 065
     Dates: start: 202208
  12. OLANZAPINE [Suspect]
     Active Substance: OLANZAPINE
     Indication: Intrusive thoughts
     Route: 065
  13. OLANZAPINE [Suspect]
     Active Substance: OLANZAPINE
     Indication: Paediatric acute-onset neuropsychiatric syndrome
     Route: 065
  14. CLONIDINE [Suspect]
     Active Substance: CLONIDINE
     Indication: Akathisia
     Dosage: 0.1 MG, QD
     Route: 065
     Dates: start: 202205, end: 202206
  15. CLONIDINE [Suspect]
     Active Substance: CLONIDINE
     Indication: Emotional disorder
  16. CLONIDINE [Suspect]
     Active Substance: CLONIDINE
     Indication: Paediatric acute-onset neuropsychiatric syndrome
  17. ARIPIPRAZOLE [Suspect]
     Active Substance: ARIPIPRAZOLE
     Indication: Mood swings
     Dosage: 7 MG, QD
     Route: 065
     Dates: start: 202208, end: 202209
  18. ARIPIPRAZOLE [Suspect]
     Active Substance: ARIPIPRAZOLE
     Indication: Paediatric acute-onset neuropsychiatric syndrome
  19. FLUVOXAMINE [Suspect]
     Active Substance: FLUVOXAMINE
     Indication: Suicidal ideation
     Dosage: 100 MG, QD (TITRATED TO 100MG DAILY)
     Route: 065
     Dates: start: 202206, end: 202301
  20. FLUVOXAMINE [Suspect]
     Active Substance: FLUVOXAMINE
     Indication: Paediatric acute-onset neuropsychiatric syndrome
  21. VILOXAZINE [Suspect]
     Active Substance: VILOXAZINE
     Indication: Attention deficit hyperactivity disorder
     Route: 065
  22. KETAMINE [Suspect]
     Active Substance: KETAMINE
     Indication: Suicidal ideation
     Route: 065
  23. CLINDAMYCIN [Suspect]
     Active Substance: CLINDAMYCIN
     Indication: Paediatric acute-onset neuropsychiatric syndrome
     Route: 065
  24. LORAZEPAM [Concomitant]
     Active Substance: LORAZEPAM
     Indication: Sedative therapy
     Route: 065
  25. AMOXICILLIN [Concomitant]
     Active Substance: AMOXICILLIN
     Indication: Paediatric acute-onset neuropsychiatric syndrome
     Dosage: 500 MG, TID
     Route: 065
     Dates: start: 202205
  26. PREDNISONE [Concomitant]
     Active Substance: PREDNISONE
     Indication: Paediatric acute-onset neuropsychiatric syndrome
     Dosage: 35 MILLIGRAM, QD
     Route: 065
  27. Immunoglobulin [Concomitant]
     Indication: Paediatric acute-onset neuropsychiatric syndrome
  28. PENICILLIN [Concomitant]
     Active Substance: PENICILLIN
     Indication: Paediatric acute-onset neuropsychiatric syndrome
     Route: 065
  29. CEFDINIR [Concomitant]
     Active Substance: CEFDINIR
     Indication: Paediatric acute-onset neuropsychiatric syndrome
     Dosage: 300 MG, BID
     Route: 065
  30. IBUPROFEN [Concomitant]
     Active Substance: IBUPROFEN
     Indication: Paediatric acute-onset neuropsychiatric syndrome
     Dosage: 300 MG, TIW
     Route: 065
     Dates: start: 202208

REACTIONS (3)
  - Drug ineffective [Unknown]
  - Irritability [Unknown]
  - Suicidal ideation [Unknown]
